FAERS Safety Report 5452363-6 (Version None)
Quarter: 2007Q3

REPORT INFORMATION
  Report Type: 
  Country: None (occurrence: None)
  Receive Date: 20070914
  Receipt Date: 20070912
  Transmission Date: 20080115
  Serious: Yes (Life-Threatening, Hospitalization)
  Sender: FDA-Public Use
  Company Number: HQWYE121312SEP07

PATIENT
  Age: 74 Year
  Sex: Male

DRUGS (2)
  1. INDERAL [Suspect]
     Indication: HYPERTROPHIC CARDIOMYOPATHY
     Dosage: 60 MG DAILY
     Route: 048
     Dates: end: 20070901
  2. INDERAL [Suspect]
     Indication: ATRIAL FIBRILLATION

REACTIONS (2)
  - ATRIOVENTRICULAR BLOCK [None]
  - MEDICATION ERROR [None]
